FAERS Safety Report 10207183 (Version 1)
Quarter: 2014Q2

REPORT INFORMATION
  Report Type: Spontaneous
  Country: US (occurrence: US)
  Receive Date: 20140530
  Receipt Date: 20140530
  Transmission Date: 20141212
  Serious: No
  Sender: FDA-Public Use
  Company Number: US-GLAXOSMITHKLINE-A1022808A

PATIENT
  Age: 62 Year
  Sex: Male

DRUGS (2)
  1. VENTOLIN [Suspect]
     Indication: COUGH
     Dosage: 1PUFF TWICE PER DAY
     Route: 055
     Dates: start: 20130501
  2. NO CONCURRENT MEDICATION [Concomitant]

REACTIONS (2)
  - Memory impairment [Not Recovered/Not Resolved]
  - Disturbance in attention [Not Recovered/Not Resolved]
